FAERS Safety Report 9630563 (Version 3)
Quarter: 2014Q1

REPORT INFORMATION
  Report Type: Report from Study
  Country: DE (occurrence: DE)
  Receive Date: 20131018
  Receipt Date: 20140206
  Transmission Date: 20141002
  Serious: Yes (Hospitalization, Other)
  Sender: FDA-Public Use
  Company Number: PHHY2013DE108244

PATIENT
  Sex: Female
  Weight: 65 kg

DRUGS (2)
  1. EXTAVIA [Suspect]
     Indication: MULTIPLE SCLEROSIS
     Dosage: UNK UKN, UNK
     Route: 058
     Dates: start: 20101028, end: 20130924
  2. EXTAVIA [Suspect]
     Dosage: 0.75 ML, QOD
     Route: 058
     Dates: end: 20131011

REACTIONS (3)
  - Panic attack [Recovering/Resolving]
  - Dizziness [Not Recovered/Not Resolved]
  - Depression [Recovering/Resolving]
